FAERS Safety Report 11839706 (Version 1)
Quarter: 2015Q4

REPORT INFORMATION
  Report Type: Spontaneous
  Country: US (occurrence: US)
  Receive Date: 20151216
  Receipt Date: 20151216
  Transmission Date: 20160305
  Serious: Yes (Death, Hospitalization)
  Sender: FDA-Public Use
  Company Number: US-JNJFOC-20151206004

PATIENT
  Age: 90 Year
  Sex: Female

DRUGS (2)
  1. ACETAMINOPHEN. [Suspect]
     Active Substance: ACETAMINOPHEN
     Indication: SUICIDE ATTEMPT
     Route: 048
  2. ACETAMINOPHEN. [Suspect]
     Active Substance: ACETAMINOPHEN
     Route: 048

REACTIONS (8)
  - Vomiting [None]
  - Hypotension [None]
  - Completed suicide [None]
  - Cardiac arrest [None]
  - Unresponsive to stimuli [None]
  - Acidosis [None]
  - Acute myocardial infarction [None]
  - Toxicity to various agents [Fatal]
